FAERS Safety Report 5782310-9 (Version None)
Quarter: 2008Q2

REPORT INFORMATION
  Report Type: 
  Country: None (occurrence: None)
  Receive Date: 20080623
  Receipt Date: 20080527
  Transmission Date: 20081010
  Serious: No
  Sender: FDA-Public Use
  Company Number: US-BOEHRINGER INGELHEIM GMBH, GERMANY-2008-BP-08232BP

PATIENT
  Age: 69 Year
  Sex: Male

DRUGS (15)
  1. AGGRENOX [Suspect]
     Route: 048
     Dates: start: 20080514
  2. MUCINEX [Concomitant]
  3. PRILOSEC [Concomitant]
  4. TRAMADOL HCL [Concomitant]
  5. TYLENOL [Concomitant]
  6. ALEVE [Concomitant]
  7. FELODIPINE [Concomitant]
  8. TERAZOSIN HCL [Concomitant]
  9. FLONASE [Concomitant]
  10. ASPIRIN [Concomitant]
  11. SIMVASTATIN [Concomitant]
  12. ZOLPIDEM [Concomitant]
  13. LISINOPRIL [Concomitant]
  14. POTASSIUM CHLORIDE [Concomitant]
  15. VITAMIN CAP [Concomitant]

REACTIONS (4)
  - BACK PAIN [None]
  - FATIGUE [None]
  - HEADACHE [None]
  - NECK PAIN [None]
